FAERS Safety Report 15061747 (Version 1)
Quarter: 2018Q2

REPORT INFORMATION
  Report Type: Spontaneous
  Country: IT (occurrence: IT)
  Receive Date: 20180625
  Receipt Date: 20180625
  Transmission Date: 20180711
  Serious: Yes (Other)
  Sender: FDA-Public Use
  Company Number: IT-IMPAX LABORATORIES, INC-2018-IPXL-02164

PATIENT
  Age: 39 Year
  Sex: Female

DRUGS (4)
  1. CABERGOLINE. [Suspect]
     Active Substance: CABERGOLINE
     Indication: PRODUCT USE IN UNAPPROVED INDICATION
  2. APIXABAN [Concomitant]
     Active Substance: APIXABAN
     Indication: ANTICOAGULANT THERAPY
     Dosage: 60 MG, DAILY
     Route: 048
  3. CABERGOLINE. [Suspect]
     Active Substance: CABERGOLINE
     Indication: LACTATION PUERPERAL INCREASED
     Dosage: UNK
     Route: 065
  4. FONDAPARINUX [Concomitant]
     Active Substance: FONDAPARINUX
     Indication: ANTICOAGULANT THERAPY
     Dosage: 7.5 MG, DAILY, FOR 7 DAYS
     Route: 065

REACTIONS (4)
  - Product use in unapproved indication [Unknown]
  - Pleurisy [Recovering/Resolving]
  - Maternal exposure during breast feeding [Unknown]
  - Pleural effusion [Recovering/Resolving]
